FAERS Safety Report 14998589 (Version 1)
Quarter: 2018Q2

REPORT INFORMATION
  Report Type: Spontaneous
  Country: ZA (occurrence: ZA)
  Receive Date: 20180612
  Receipt Date: 20180612
  Transmission Date: 20180711
  Serious: Yes (Death, Other)
  Sender: FDA-Public Use
  Company Number: ZA-009507513-1806ZAF002611

PATIENT
  Age: 58 Year
  Sex: Male

DRUGS (3)
  1. FUNGIZONE [Suspect]
     Active Substance: AMPHOTERICIN B
     Indication: CANDIDA INFECTION
     Dosage: UNK
     Dates: start: 20180505
  2. CANCIDAS [Suspect]
     Active Substance: CASPOFUNGIN ACETATE
     Indication: CANDIDA INFECTION
     Dosage: 70 MG, UNK
     Route: 042
     Dates: start: 20180412, end: 20180412
  3. CASPOFUNGIN ACETATE. [Suspect]
     Active Substance: CASPOFUNGIN ACETATE
     Indication: CANDIDA INFECTION
     Dosage: 50 MG, QD
     Route: 042
     Dates: start: 20180412, end: 20180430

REACTIONS (1)
  - Death [Fatal]

NARRATIVE: CASE EVENT DATE: 201805
